FAERS Safety Report 4973525-8 (Version None)
Quarter: 2006Q2

REPORT INFORMATION
  Report Type: 
  Country: None (occurrence: None)
  Receive Date: 20060414
  Receipt Date: 20050919
  Transmission Date: 20061013
  Serious: Yes (Hospitalization)
  Sender: FDA-Public Use
  Company Number: US-SANOFI-SYNTHELABO-D01200506581

PATIENT
  Sex: Female
  Weight: 127.5 kg

DRUGS (8)
  1. CLOPIDOGREL [Suspect]
     Indication: ATRIAL FIBRILLATION
     Route: 048
     Dates: start: 20041106, end: 20050826
  2. IRBESARTAN/ PLACEBO [Suspect]
     Indication: ATRIAL FIBRILLATION
     Dosage: 150 MG/DAY FOR 2 WEEKS FOLLOWING BY 300 MG/DAY
     Route: 048
     Dates: start: 20041106
  3. ASPIRIN [Concomitant]
     Indication: ATRIAL FIBRILLATION
     Dosage: 81 MG
     Route: 048
     Dates: start: 20041106, end: 20050826
  4. LANTUS [Concomitant]
  5. CARDIZEM [Concomitant]
  6. POTASSIUM CHLORIDE [Concomitant]
  7. LISINOPRIL [Concomitant]
  8. TOPROL-XL [Concomitant]

REACTIONS (2)
  - ADENOMYOSIS [None]
  - POSTMENOPAUSAL HAEMORRHAGE [None]
